FAERS Safety Report 6773997-2 (Version None)
Quarter: 2010Q2

REPORT INFORMATION
  Report Type: 
  Country: None (occurrence: None)
  Receive Date: 20100616
  Receipt Date: 20100616
  Transmission Date: 20101027
  Serious: Yes (Hospitalization)
  Sender: FDA-Public Use
  Company Number: None

PATIENT
  Sex: Female
  Weight: 89.5 kg

DRUGS (2)
  1. CELEBREX [Suspect]
     Indication: RECTAL CANCER
     Dosage: 400 MG D2-21 EACH CYLCE, BID P.O.
     Route: 048
     Dates: start: 20100427
  2. EPO906 [Suspect]
     Indication: RECTAL CANCER
     Dosage: 11MG/M2 D1 EACH CYCLE IV
     Route: 042
     Dates: start: 20100504

REACTIONS (6)
  - DEHYDRATION [None]
  - DIARRHOEA [None]
  - DIZZINESS [None]
  - FAECES DISCOLOURED [None]
  - NO THERAPEUTIC RESPONSE [None]
  - RENAL FAILURE [None]
